FAERS Safety Report 7120861-5 (Version None)
Quarter: 2010Q4

REPORT INFORMATION
  Report Type: 
  Country: None (occurrence: None)
  Receive Date: 20101124
  Receipt Date: 20091111
  Transmission Date: 20110411
  Serious: No
  Sender: FDA-Public Use
  Company Number: US-PFIZER INC-2009286305

PATIENT
  Sex: Male
  Weight: 101 kg

DRUGS (4)
  1. TIKOSYN [Suspect]
     Indication: ARRHYTHMIA SUPRAVENTRICULAR
     Dosage: 500 UG, 2X/DAY
     Dates: start: 20091015
  2. ALBUTEROL [Concomitant]
  3. MONTELUKAST [Concomitant]
  4. ADVAIR DISKUS 100/50 [Concomitant]

REACTIONS (2)
  - ARRHYTHMIA [None]
  - VENTRICULAR EXTRASYSTOLES [None]
